FAERS Safety Report 12639690 (Version 2)
Quarter: 2016Q3

REPORT INFORMATION
  Report Type: Report from Study
  Country: None (occurrence: US)
  Receive Date: 20160810
  Receipt Date: 20160927
  Transmission Date: 20161109
  Serious: Yes (Hospitalization)
  Sender: FDA-Public Use
  Company Number: US-ENDO PHARMACEUTICALS INC.-2016-004941

PATIENT
  Age: 66 Year
  Sex: Male
  Weight: 111 kg

DRUGS (10)
  1. PREDNISONE TABLETS 5MG [Suspect]
     Active Substance: PREDNISONE
     Indication: HORMONE-REFRACTORY PROSTATE CANCER
     Route: 048
     Dates: start: 20160311, end: 20160428
  2. CALCIUM [Concomitant]
     Active Substance: CALCIUM
     Indication: PRODUCT USED FOR UNKNOWN INDICATION
     Route: 065
  3. PREDNISONE TABLETS 5MG [Suspect]
     Active Substance: PREDNISONE
     Route: 048
     Dates: start: 20160506
  4. ABIRATERONE [Suspect]
     Active Substance: ABIRATERONE
     Route: 048
     Dates: start: 20160511
  5. ABIRATERONE [Suspect]
     Active Substance: ABIRATERONE
     Indication: HORMONE-REFRACTORY PROSTATE CANCER
     Route: 048
     Dates: start: 20160311, end: 20160428
  6. VITAMIN D [Concomitant]
     Active Substance: CHOLECALCIFEROL
     Indication: PRODUCT USED FOR UNKNOWN INDICATION
     Route: 065
  7. XGEVA [Suspect]
     Active Substance: DENOSUMAB
     Route: 058
     Dates: start: 20160630
  8. ENZALUTAMIDE [Suspect]
     Active Substance: ENZALUTAMIDE
     Indication: HORMONE-REFRACTORY PROSTATE CANCER
     Route: 048
     Dates: start: 20160311, end: 20160428
  9. ENZALUTAMIDE [Suspect]
     Active Substance: ENZALUTAMIDE
     Route: 048
     Dates: start: 20160511
  10. XGEVA [Suspect]
     Active Substance: DENOSUMAB
     Indication: METASTASES TO BONE
     Route: 058

REACTIONS (3)
  - Dehydration [Recovered/Resolved]
  - Hypocalcaemia [Recovered/Resolved]
  - Back pain [Recovered/Resolved]

NARRATIVE: CASE EVENT DATE: 20160422
